FAERS Safety Report 6822608-6 (Version None)
Quarter: 2010Q3

REPORT INFORMATION
  Report Type: 
  Country: None (occurrence: None)
  Receive Date: 20100708
  Receipt Date: 20100625
  Transmission Date: 20110219
  Serious: Yes (Other)
  Sender: FDA-Public Use
  Company Number: US-ELI_LILLY_AND_COMPANY-US201006007590

PATIENT
  Sex: Female

DRUGS (5)
  1. CYMBALTA [Suspect]
     Indication: DEPRESSION
  2. LAMICTAL [Concomitant]
  3. ABILIFY [Concomitant]
  4. CARAFATE [Concomitant]
  5. REGLAN [Concomitant]

REACTIONS (5)
  - HEPATIC CIRRHOSIS [None]
  - LIVER INJURY [None]
  - OBESITY [None]
  - POST PROCEDURAL COMPLICATION [None]
  - SALPINGECTOMY [None]
